FAERS Safety Report 4924745-X (Version None)
Quarter: 2006Q1

REPORT INFORMATION
  Report Type: 
  Country: None (occurrence: None)
  Receive Date: 20060227
  Receipt Date: 20050621
  Transmission Date: 20060701
  Serious: Yes (Hospitalization, Disabling, Other)
  Sender: FDA-Public Use
  Company Number: US-MERCK-0506USA03219

PATIENT
  Age: 50 Year
  Sex: Male
  Weight: 98 kg

DRUGS (2)
  1. VIOXX [Suspect]
     Indication: ARTHRITIS
     Route: 048
     Dates: start: 20031201, end: 20040505
  2. VIOXX [Suspect]
     Route: 048
     Dates: start: 20040101, end: 20040505

REACTIONS (2)
  - ACUTE MYOCARDIAL INFARCTION [None]
  - ANGIOPATHY [None]
